FAERS Safety Report 9581958 (Version 1)
Quarter: 2013Q4

REPORT INFORMATION
  Report Type: Spontaneous
  Country: IT (occurrence: IT)
  Receive Date: 20131002
  Receipt Date: 20131002
  Transmission Date: 20140711
  Serious: Yes (Hospitalization)
  Sender: FDA-Public Use
  Company Number: IT-ACTAVIS-2013-17352

PATIENT
  Age: 53 Year
  Sex: Female

DRUGS (3)
  1. OXALIPLATIN (UNKNOWN) [Suspect]
     Indication: COLON CANCER
     Dosage: 195 MG, DAILY
     Route: 042
     Dates: start: 20130902, end: 20130902
  2. AVASTIN /00848101/ [Suspect]
     Indication: COLON CANCER
     Dosage: 400 MG, DAILY
     Route: 042
     Dates: start: 20130902, end: 20130902
  3. XELODA [Suspect]
     Indication: COLON CANCER
     Dosage: 1500 MG, DAILY
     Route: 048
     Dates: start: 20130902, end: 20130902

REACTIONS (3)
  - Anaphylactic reaction [Recovered/Resolved]
  - Laryngospasm [Recovered/Resolved]
  - Tachycardia [Recovered/Resolved]
